FAERS Safety Report 7149281-4 (Version None)
Quarter: 2010Q4

REPORT INFORMATION
  Report Type: 
  Country: None (occurrence: None)
  Receive Date: 20101209
  Receipt Date: 20101203
  Transmission Date: 20110411
  Serious: Yes (Other)
  Sender: FDA-Public Use
  Company Number: FR-PFIZER INC-2010163580

PATIENT
  Sex: Female

DRUGS (2)
  1. CELEBREX [Suspect]
  2. RIVOTRIL [Suspect]

REACTIONS (2)
  - BRADYCARDIA [None]
  - HYPOTENSION [None]
